FAERS Safety Report 26214382 (Version 1)
Quarter: 2025Q4

REPORT INFORMATION
  Report Type: Spontaneous
  Country: US (occurrence: US)
  Receive Date: 20251230
  Receipt Date: 20251230
  Transmission Date: 20260117
  Serious: Yes (Hospitalization, Other)
  Sender: JAZZ
  Company Number: US-JAZZ PHARMACEUTICALS-2025-US-029437

PATIENT
  Age: 35 Year
  Sex: Female

DRUGS (2)
  1. XYWAV [Suspect]
     Active Substance: CALCIUM OXYBATE\MAGNESIUM OXYBATE\POTASSIUM OXYBATE\SODIUM OXYBATE
     Indication: Product used for unknown indication
     Dosage: 3 UNK
  2. METHYLPHENIDATE [Suspect]
     Active Substance: METHYLPHENIDATE
     Indication: Product used for unknown indication
     Dosage: UNK

REACTIONS (8)
  - Depressed level of consciousness [Unknown]
  - Mydriasis [Unknown]
  - Nystagmus [Unknown]
  - Tachycardia [Unknown]
  - X-ray abnormal [Unknown]
  - Tachypnoea [Unknown]
  - Hyperventilation [Unknown]
  - Suspected suicide [Unknown]
